FAERS Safety Report 6029251-X (Version None)
Quarter: 2009Q1

REPORT INFORMATION
  Report Type: 
  Country: None (occurrence: None)
  Receive Date: 20090102
  Receipt Date: 20081217
  Transmission Date: 20090719
  Serious: Yes (Other)
  Sender: FDA-Public Use
  Company Number: CHPA2008US22600

PATIENT
  Age: 36 Year
  Sex: Female

DRUGS (3)
  1. EXCEDRIN (MIGRAINE) [Suspect]
     Indication: HEADACHE
     Dates: start: 19840101
  2. TYLENOL ^JOHNSON + JOHNSON^ (PARACETAMOL) [Suspect]
     Indication: HEADACHE
     Dosage: 2000-3000 MG, QD
     Dates: start: 19840101, end: 20080101
  3. ^UNSPECIFIED ACETAMINOPHEN CONTAINING PRODUCTS^ (UNKNOWN) [Suspect]
     Indication: HEADACHE
     Dates: start: 19840101

REACTIONS (5)
  - ABDOMINAL PAIN [None]
  - ANOREXIA [None]
  - HEPATITIS [None]
  - HEPATOMEGALY [None]
  - PAIN [None]
